FAERS Safety Report 8518619-5 (Version None)
Quarter: 2012Q3

REPORT INFORMATION
  Report Type: 
  Country: None (occurrence: None)
  Receive Date: 20120718
  Receipt Date: 20110922
  Transmission Date: 20120928
  Serious: Yes (Life-Threatening, Other)
  Sender: FDA-Public Use
  Company Number: US-BRISTOL-MYERS SQUIBB COMPANY-15761075

PATIENT
  Age: 68 Year
  Sex: Female

DRUGS (9)
  1. GABAPENTIN [Concomitant]
  2. BENAZEPRIL HYDROCHLORIDE [Concomitant]
  3. LEVOXYL [Concomitant]
  4. ADVICOR [Concomitant]
  5. HYDROCHLOROTHIAZIDE [Concomitant]
  6. METFORMIN HYDROCHLORIDE [Concomitant]
  7. COUMADIN [Suspect]
     Indication: ATRIAL FIBRILLATION
     Dosage: INCREASED TO 10/10/12.5 MG DAILY
     Route: 048
     Dates: start: 20040101
  8. METOPROLOL SUCCINATE [Concomitant]
  9. COUMADIN [Suspect]
     Indication: MITRAL VALVE REPLACEMENT
     Dosage: INCREASED TO 10/10/12.5 MG DAILY
     Route: 048
     Dates: start: 20040101

REACTIONS (1)
  - PROTHROMBIN TIME PROLONGED [None]
